FAERS Safety Report 16146347 (Version 1)
Quarter: 2019Q2

REPORT INFORMATION
  Report Type: Spontaneous
  Country: US (occurrence: US)
  Receive Date: 20190402
  Receipt Date: 20190402
  Transmission Date: 20190711
  Serious: No
  Sender: FDA-Public Use
  Company Number: US-PFIZER INC-2019140770

PATIENT
  Age: 50 Year
  Sex: Male

DRUGS (2)
  1. GABAPENTIN. [Suspect]
     Active Substance: GABAPENTIN
     Indication: RADICULOPATHY
     Dosage: UNK
     Route: 048
  2. GABAPENTIN. [Suspect]
     Active Substance: GABAPENTIN
     Indication: COMPLEX REGIONAL PAIN SYNDROME

REACTIONS (5)
  - Nausea [Unknown]
  - Abdominal discomfort [Recovered/Resolved]
  - Sedation [Recovered/Resolved]
  - Product use in unapproved indication [Unknown]
  - Weight increased [Recovered/Resolved]
